FAERS Safety Report 21365478 (Version 1)
Quarter: 2022Q3

REPORT INFORMATION
  Report Type: Spontaneous
  Country: KR (occurrence: KR)
  Receive Date: 20220922
  Receipt Date: 20220922
  Transmission Date: 20221026
  Serious: Yes (Hospitalization)
  Sender: FDA-Public Use
  Company Number: KR-ORGANON-O2209KOR001554

PATIENT
  Sex: Male

DRUGS (10)
  1. REMERON SOLTAB [Suspect]
     Active Substance: MIRTAZAPINE
     Indication: Sleep disorder
     Dosage: 3.75 MILLIGRAM, QD
     Dates: start: 20180322
  2. ATORVASTATIN CALCIUM ANHYDROUS [Suspect]
     Active Substance: ATORVASTATIN CALCIUM ANHYDROUS
     Indication: Hyperlipidaemia
     Dosage: 20 MILLIGRAM, QD
     Dates: start: 20180125
  3. DIMENHYDRINATE [Concomitant]
     Active Substance: DIMENHYDRINATE
     Indication: Prophylaxis
     Dosage: 50 MILLIGRAM, QD
     Dates: start: 2015
  4. RANITIDINE HYDROCHLORIDE;SUCRALFATE;TRIPOTASSIUM DICITRATOBISMUTHATE [Concomitant]
     Indication: Prophylaxis
     Dosage: UNK UNK, QD
     Dates: start: 20151111
  5. GINKO BILOBA LEAF EXTRACT [Concomitant]
     Indication: Prophylaxis
     Dosage: 80 MILLIGRAM, QD
     Dates: start: 20151111
  6. AMLODIPINE\HYDROCHLOROTHIAZIDE\OLMESARTAN [Concomitant]
     Active Substance: AMLODIPINE\HYDROCHLOROTHIAZIDE\OLMESARTAN
     Indication: Essential hypertension
     Dosage: UNK, QD
     Dates: start: 20151111
  7. BISOPROLOL FUMARATE [Concomitant]
     Active Substance: BISOPROLOL FUMARATE
     Indication: Atrial fibrillation
     Dosage: 5 MILLIGRAM, QD
     Dates: start: 20180125
  8. BISOPROLOL FUMARATE [Concomitant]
     Active Substance: BISOPROLOL FUMARATE
     Indication: Atrial flutter
  9. LORAZEPAM [Concomitant]
     Active Substance: LORAZEPAM
     Indication: Insomnia
     Dosage: 1 MILLIGRAM, QD
     Dates: start: 20180322
  10. SARPOGRELATE HYDROCHLORIDE [Concomitant]
     Active Substance: SARPOGRELATE HYDROCHLORIDE
     Indication: Prophylaxis
     Dosage: 100 MILLIGRAM, QD
     Dates: start: 20180322

REACTIONS (1)
  - Condition aggravated [Recovered/Resolved]

NARRATIVE: CASE EVENT DATE: 20180401
